FAERS Safety Report 9651839 (Version 1)
Quarter: 2013Q4

REPORT INFORMATION
  Report Type: Report from Study
  Country: JP (occurrence: JP)
  Receive Date: 20131029
  Receipt Date: 20131029
  Transmission Date: 20140711
  Serious: No
  Sender: FDA-Public Use
  Company Number: JP-JNJFOC-20131016168

PATIENT
  Age: 73 Year
  Sex: Female

DRUGS (20)
  1. STELARA [Suspect]
     Indication: PSORIASIS
     Route: 058
     Dates: start: 20130307, end: 20130307
  2. STELARA [Suspect]
     Indication: PSORIASIS
     Route: 058
     Dates: start: 20121220, end: 20121220
  3. STELARA [Suspect]
     Indication: PSORIASIS
     Route: 058
     Dates: start: 20120927, end: 20120927
  4. STELARA [Suspect]
     Indication: PSORIASIS
     Route: 058
     Dates: start: 20120704, end: 20120704
  5. STELARA [Suspect]
     Indication: PSORIASIS
     Route: 058
     Dates: start: 20130606, end: 20130606
  6. STELARA [Suspect]
     Indication: PSORIASIS
     Route: 058
     Dates: start: 20120119, end: 20120119
  7. STELARA [Suspect]
     Indication: PSORIASIS
     Route: 058
     Dates: start: 20111020, end: 20111020
  8. STELARA [Suspect]
     Indication: PSORIASIS
     Route: 058
     Dates: start: 20110922, end: 20110922
  9. STELARA [Suspect]
     Indication: PSORIASIS
     Route: 058
     Dates: start: 20120412, end: 20120412
  10. STELARA [Suspect]
     Indication: PSORIASIS
     Route: 058
     Dates: start: 20130829, end: 20130829
  11. ISONIAZID [Suspect]
     Indication: PROPHYLAXIS
     Route: 048
     Dates: start: 20110901
  12. METHOTREXATE [Suspect]
     Indication: PSORIASIS
     Route: 048
     Dates: start: 20120829
  13. METHOTREXATE [Suspect]
     Indication: PSORIASIS
     Route: 048
     Dates: start: 20120802, end: 20120828
  14. ANTEBATE [Concomitant]
     Indication: PSORIASIS
     Route: 061
     Dates: start: 20110825
  15. DIFLAL [Concomitant]
     Indication: PSORIASIS
     Route: 061
     Dates: start: 20110825
  16. ZYRTEC [Concomitant]
     Indication: PSORIASIS
     Route: 048
     Dates: start: 20110901, end: 20111214
  17. HEPARINOID [Concomitant]
     Indication: PSORIASIS
     Route: 061
     Dates: start: 20111117, end: 20120419
  18. PREDONINE [Concomitant]
     Indication: PSORIASIS
     Route: 031
     Dates: start: 20120119, end: 20120419
  19. XYZALL [Concomitant]
     Indication: PSORIASIS
     Route: 048
     Dates: start: 20120119, end: 20120419
  20. FOLIAMIN [Concomitant]
     Indication: PROPHYLAXIS
     Route: 048
     Dates: start: 20120802

REACTIONS (5)
  - Hand-foot-and-mouth disease [Recovered/Resolved]
  - Glossitis [Recovering/Resolving]
  - Constipation [Recovering/Resolving]
  - Upper respiratory tract inflammation [Recovering/Resolving]
  - Hepatic function abnormal [Recovering/Resolving]
